FAERS Safety Report 19618380 (Version 1)
Quarter: 2021Q3

REPORT INFORMATION
  Report Type: Spontaneous
  Country: US (occurrence: US)
  Receive Date: 20210727
  Receipt Date: 20210727
  Transmission Date: 20211014
  Serious: No
  Sender: FDA-Public Use
  Company Number: US-ROCHE-2778754

PATIENT
  Age: 73 Year
  Sex: Male

DRUGS (1)
  1. XELODA [Suspect]
     Active Substance: CAPECITABINE
     Indication: PRODUCT USED FOR UNKNOWN INDICATION
     Dosage: FOR OF ADMIN: 500 MG
     Route: 048

REACTIONS (2)
  - Product dose omission in error [Unknown]
  - No adverse event [Unknown]

NARRATIVE: CASE EVENT DATE: 20210223
